FAERS Safety Report 15011967 (Version 1)
Quarter: 2018Q2

REPORT INFORMATION
  Report Type: Spontaneous
  Country: IN (occurrence: IN)
  Receive Date: 20180614
  Receipt Date: 20180614
  Transmission Date: 20180711
  Serious: Yes (Hospitalization)
  Sender: FDA-Public Use
  Company Number: IN-UNICHEM PHARMACEUTICALS (USA) INC-UCM201806-000131

PATIENT
  Age: 60 Year
  Sex: Male

DRUGS (9)
  1. RISPERIDONE. [Concomitant]
     Active Substance: RISPERIDONE
     Indication: EXTRAPYRAMIDAL DISORDER
  2. TRAZODONE [Concomitant]
     Active Substance: TRAZODONE HYDROCHLORIDE
     Indication: AGITATION
  3. QUETIAPINE FUMARATE. [Suspect]
     Active Substance: QUETIAPINE FUMARATE
  4. OLANZAPINE. [Concomitant]
     Active Substance: OLANZAPINE
     Indication: EXTRAPYRAMIDAL DISORDER
  5. QUETIAPINE FUMARATE. [Suspect]
     Active Substance: QUETIAPINE FUMARATE
  6. TELMISARTAN. [Concomitant]
     Active Substance: TELMISARTAN
     Indication: HYPERTENSION
  7. CLONAZEPAM. [Concomitant]
     Active Substance: CLONAZEPAM
  8. DONEPEZIL. [Suspect]
     Active Substance: DONEPEZIL
  9. TRAZODONE [Concomitant]
     Active Substance: TRAZODONE HYDROCHLORIDE
     Indication: SLEEP DISORDER

REACTIONS (1)
  - Pleurothotonus [Recovered/Resolved]
